FAERS Safety Report 9172206 (Version 2)
Quarter: 2014Q1

REPORT INFORMATION
  Report Type: Spontaneous
  Country: GB (occurrence: GB)
  Receive Date: 20130319
  Receipt Date: 20140224
  Transmission Date: 20141002
  Serious: Yes (Other)
  Sender: FDA-Public Use
  Company Number: GB-TEVA-390998ISR

PATIENT
  Sex: Female

DRUGS (4)
  1. AMIODARONE [Suspect]
     Indication: ATRIAL FIBRILLATION
     Dosage: 600 MILLIGRAM DAILY; FOR 1 WEEK
     Route: 065
     Dates: start: 20120504
  2. AMIODARONE [Suspect]
     Dosage: 400 MILLIGRAM DAILY; FOR ONE WEEK
     Route: 065
     Dates: start: 20120512, end: 20120519
  3. AMIODARONE [Suspect]
     Dosage: 200 MILLIGRAM DAILY;
     Route: 065
     Dates: start: 20120520, end: 20120905
  4. FLECAINIDE [Suspect]
     Indication: ATRIAL FIBRILLATION
     Dates: end: 201209

REACTIONS (7)
  - Corneal deposits [Recovered/Resolved]
  - Nausea [Recovered/Resolved]
  - Cough [Not Recovered/Not Resolved]
  - Fatigue [Recovered/Resolved]
  - Alopecia [Not Recovered/Not Resolved]
  - Dysgeusia [Recovered/Resolved]
  - Dry mouth [Recovered/Resolved]
